FAERS Safety Report 8756177 (Version 2)
Quarter: 2012Q4

REPORT INFORMATION
  Report Type: Spontaneous
  Country: GB (occurrence: None)
  Receive Date: 20120814
  Receipt Date: 20121107
  Transmission Date: 20130627
  Serious: Yes (Hospitalization)
  Sender: FDA-Public Use
  Company Number: 2012-002771

PATIENT
  Sex: Female

DRUGS (3)
  1. ASACOL [Suspect]
     Indication: ULCERATIVE COLITIS
     Route: 048
     Dates: start: 2007
  2. ASACOL [Suspect]
     Indication: ULCERATIVE COLITIS
     Route: 048
  3. ALL OTHER THERAPEUTIC PRODUCTS [Suspect]
     Indication: DIABETES

REACTIONS (8)
  - Drug interaction [None]
  - Medication residue [None]
  - Abnormal faeces [None]
  - Colitis ulcerative [None]
  - Fatigue [None]
  - Scleritis [None]
  - Diarrhoea [None]
  - Haematochezia [None]
